FAERS Safety Report 24298766 (Version 1)
Quarter: 2024Q3

REPORT INFORMATION
  Report Type: Spontaneous
  Country: US (occurrence: None)
  Receive Date: 20240907
  Receipt Date: 20240907
  Transmission Date: 20241017
  Serious: No
  Sender: Public
  Company Number: None

PATIENT
  Age: 73 Year
  Sex: Female
  Weight: 60.75 kg

DRUGS (9)
  1. DOXYCYCLINE HYCLATE [Suspect]
     Active Substance: DOXYCYCLINE HYCLATE
     Indication: Arthropod bite
     Dosage: 1 CAQPSULE TWICE A DAY ORAL
     Route: 048
     Dates: start: 20240716, end: 20240722
  2. IRON [Concomitant]
     Active Substance: IRON
  3. CALCIUM [Concomitant]
     Active Substance: CALCIUM
  4. ZINC [Concomitant]
     Active Substance: ZINC
  5. MAGNESIUM [Concomitant]
     Active Substance: MAGNESIUM
  6. ASCORBIC ACID [Concomitant]
     Active Substance: ASCORBIC ACID
  7. D [Concomitant]
  8. TOCOPHEROL [Concomitant]
     Active Substance: TOCOPHEROL
  9. K12 [Concomitant]

REACTIONS (5)
  - Dizziness [None]
  - Erythema [None]
  - Faeces discoloured [None]
  - Retching [None]
  - Fatigue [None]

NARRATIVE: CASE EVENT DATE: 20240722
